FAERS Safety Report 9290754 (Version 1)
Quarter: 2013Q2

REPORT INFORMATION
  Report Type: Spontaneous
  Country: DE (occurrence: DE)
  Receive Date: 20130515
  Receipt Date: 20130515
  Transmission Date: 20140414
  Serious: Yes (Hospitalization, Other)
  Sender: FDA-Public Use
  Company Number: GXKR2013DE001782

PATIENT
  Sex: 0

DRUGS (3)
  1. METHADONE [Suspect]
     Indication: DRUG WITHDRAWAL MAINTENANCE THERAPY
     Dosage: MATERNAL DOSE: 60 [MG/D ]
     Route: 064
  2. DOXEPIN [Suspect]
     Indication: WITHDRAWAL SYNDROME
     Dosage: MATERNAL DOSE: 300 [MG/DF ]/ BETWEEN 100MG/D TO 300MG/D IF REQUIRED
     Route: 064
  3. TRAMADOL ^ALIUD PHARMA^ [Suspect]
     Indication: WITHDRAWAL SYNDROME
     Dosage: MATERNAL DOSE: 500 [MG/D (BIS 100 MG/D) BEI BEDARF ]/ BETWEEN 100MG/D TO 500MG/D IF REQUIRED
     Route: 064

REACTIONS (8)
  - Premature baby [Recovered/Resolved]
  - Drug withdrawal syndrome neonatal [Recovered/Resolved]
  - Myoclonus [Recovered/Resolved]
  - Supraventricular tachycardia [Recovered/Resolved]
  - Exposure during pregnancy [Unknown]
  - Tachypnoea [None]
  - Hypoglycaemia [None]
  - Temperature regulation disorder [None]
